FAERS Safety Report 5912157-1 (Version None)
Quarter: 2008Q4

REPORT INFORMATION
  Report Type: 
  Country: None (occurrence: None)
  Receive Date: 20081008
  Receipt Date: 20080930
  Transmission Date: 20090506
  Serious: Yes (Hospitalization)
  Sender: FDA-Public Use
  Company Number: FR-AVENTIS-200813508FR

PATIENT
  Age: 79 Year
  Sex: Female

DRUGS (11)
  1. LASIX [Suspect]
     Indication: DRUG USE FOR UNKNOWN INDICATION
     Route: 048
     Dates: end: 20080805
  2. RIFADIN [Suspect]
     Indication: ANTIBIOTIC PROPHYLAXIS
     Route: 042
     Dates: start: 20080729, end: 20080802
  3. RIFADIN [Suspect]
     Route: 042
     Dates: start: 20080806, end: 20080808
  4. PEFLACINE                          /00772701/ [Suspect]
     Indication: ANTIBIOTIC PROPHYLAXIS
     Route: 048
     Dates: start: 20080729, end: 20080808
  5. BACTRIM [Suspect]
     Indication: DRUG USE FOR UNKNOWN INDICATION
     Route: 042
     Dates: start: 20080803, end: 20080805
  6. AUGMENTIN '125' [Suspect]
     Indication: ANTIBIOTIC PROPHYLAXIS
     Route: 042
     Dates: start: 20080729, end: 20080808
  7. PROZAC [Concomitant]
     Indication: DRUG USE FOR UNKNOWN INDICATION
     Route: 048
     Dates: end: 20080805
  8. FUNGIZONE [Concomitant]
     Indication: DRUG USE FOR UNKNOWN INDICATION
     Dosage: DOSE QUANTITY: 3; DOSE UNIT: TABLESPOON
     Route: 048
  9. CARDENSIEL [Concomitant]
     Indication: DRUG USE FOR UNKNOWN INDICATION
     Route: 048
  10. TAZOCILLINE [Concomitant]
     Indication: ANTIBIOTIC PROPHYLAXIS
     Dates: start: 20080719, end: 20080728
  11. AMIKLIN                            /00391001/ [Concomitant]
     Indication: ANTIBIOTIC PROPHYLAXIS
     Dates: start: 20080719, end: 20080728

REACTIONS (3)
  - CONVULSION [None]
  - HYPONATRAEMIA [None]
  - NERVOUS SYSTEM DISORDER [None]
